FAERS Safety Report 16598310 (Version 1)
Quarter: 2019Q3

REPORT INFORMATION
  Report Type: Spontaneous
  Country: NO (occurrence: NO)
  Receive Date: 20190719
  Receipt Date: 20190719
  Transmission Date: 20191004
  Serious: Yes (Hospitalization, Other)
  Sender: FDA-Public Use
  Company Number: NO-PFIZER INC-2019301934

PATIENT
  Age: 45 Year
  Sex: Female
  Weight: 130 kg

DRUGS (13)
  1. SOMAC [Concomitant]
     Active Substance: PANTOPRAZOLE SODIUM
     Dosage: 40 MG, 1X/DAY
     Route: 048
  2. SALAZOPYRIN [Concomitant]
     Active Substance: SULFASALAZINE
     Dosage: 1500 MG, EVERY 12 HOUR
     Route: 048
  3. ALENDRONIC ACID [Concomitant]
     Active Substance: ALENDRONIC ACID
     Dosage: 70 MG, WEEKLY
  4. PALEXIA [Concomitant]
     Active Substance: TAPENTADOL HYDROCHLORIDE
     Dosage: 50 MG, AS NEEDED (EVERY 12 HOURS WHEN NEEDED)
     Route: 048
  5. XELJANZ [Suspect]
     Active Substance: TOFACITINIB CITRATE
     Dosage: 5 MG, EVERY 12 HOUR, RESTARTED 11JUN2019, 3 WEEKS AFTER HIP PROTHESIS INSERTION
     Route: 048
     Dates: start: 20190611
  6. PARACET [PARACETAMOL] [Concomitant]
     Dosage: 1 G, UNK (POSTOPERATIVE PERIODE: DOSE INCREASED)
     Route: 048
  7. KLEXANE [Concomitant]
     Active Substance: ENOXAPARIN
     Indication: THROMBOSIS PROPHYLAXIS
     Dosage: 40 MG, 1X/DAY
     Route: 058
  8. SAROTEX [Concomitant]
     Active Substance: AMITRIPTYLINE HYDROCHLORIDE
     Dosage: 25 MG, 1X/DAY
     Route: 048
  9. DIVISUN [Concomitant]
     Dosage: 2000 IU, 1X/DAY (FOR THREE MONTHS)
     Route: 048
  10. DUROFERON [Concomitant]
     Active Substance: FERROUS SULFATE
     Dosage: 100 MG, 1X/DAY
     Route: 048
  11. MOVICOL [Concomitant]
     Active Substance: POLYETHYLENE GLYCOL 3350\POTASSIUM CHLORIDE\SODIUM BICARBONATE\SODIUM CHLORIDE
     Dosage: 1-3 BAGS WHEN NEEDED
     Route: 048
  12. XELJANZ [Suspect]
     Active Substance: TOFACITINIB CITRATE
     Indication: RHEUMATOID ARTHRITIS
     Dosage: PAUSED 15MAY2019, ONE WEEK BEFORE HIP PROTHESIS INSERTION
     Route: 048
     Dates: start: 20181226, end: 20190515
  13. PREDNISOLONE. [Concomitant]
     Active Substance: PREDNISOLONE
     Dosage: 7.5 MG, 1X/DAY
     Route: 048

REACTIONS (1)
  - Pulmonary embolism [Recovering/Resolving]

NARRATIVE: CASE EVENT DATE: 20190612
